FAERS Safety Report 25776799 (Version 1)
Quarter: 2025Q3

REPORT INFORMATION
  Report Type: Spontaneous
  Country: US (occurrence: US)
  Receive Date: 20250909
  Receipt Date: 20250909
  Transmission Date: 20251021
  Serious: No
  Sender: DOMPE FARMACEUTICI
  Company Number: US-FARMAPROD-202503-0950

PATIENT
  Sex: Female

DRUGS (6)
  1. OXERVATE [Suspect]
     Active Substance: CENEGERMIN-BKBJ
     Indication: Neurotrophic keratopathy
     Route: 047
     Dates: start: 20250310
  2. OXERVATE [Suspect]
     Active Substance: CENEGERMIN-BKBJ
  3. VITAMIN E [Concomitant]
     Active Substance: .ALPHA.-TOCOPHEROL
  4. VITAMIN D-400 [Concomitant]
  5. VITAMIN A [Concomitant]
     Active Substance: VITAMIN A
  6. IVIZIA [Concomitant]
     Active Substance: POVIDONE

REACTIONS (4)
  - Ocular discomfort [Unknown]
  - Eye irritation [Unknown]
  - Eye swelling [Unknown]
  - Ocular hyperaemia [Unknown]
